FAERS Safety Report 21228659 (Version 3)
Quarter: 2022Q3

REPORT INFORMATION
  Report Type: Spontaneous
  Country: US (occurrence: None)
  Receive Date: 20220818
  Receipt Date: 20220913
  Transmission Date: 20221027
  Serious: Yes (Other)
  Sender: FDA-Public Use
  Company Number: US-INFO-20220046

PATIENT
  Age: 38 Year
  Sex: Female
  Weight: 80 kg

DRUGS (5)
  1. FLUCONAZOLE [Interacting]
     Active Substance: FLUCONAZOLE
     Indication: Fungal infection
     Dosage: FLUCONAZOLE 600MG IV DAILY (THE SECOND DOSE, SCHEDULED ON THE DAY OF THE REACTION, HAD NOT YET BE...
     Route: 040
  2. FLUCONAZOLE [Interacting]
     Active Substance: FLUCONAZOLE
     Indication: Fungal infection
     Dosage: FLUCONAZOLE 600MG IV DAILY (THE SECOND DOSE, SCHEDULED ON THE DAY OF THE REACTION, HAD NOT YET BE...
     Route: 048
  3. HYDROMORPHONE [Concomitant]
     Active Substance: HYDROMORPHONE
     Indication: Postoperative analgesia
     Dosage: THE PATIENT WAS THEN SWITCHED TO 2 TO 4 MG OF ORAL HYDROMORPHONE (DILAUDID, TABLETS) EVERY 4 HOUR...
     Route: 042
  4. OXYCODONE [Interacting]
     Active Substance: OXYCODONE
     Indication: Procedural pain
     Route: 048
  5. ACETAMINOPHEN [Concomitant]
     Active Substance: ACETAMINOPHEN
     Indication: Procedural pain

REACTIONS (2)
  - Toxicity to various agents [Recovered/Resolved]
  - Drug interaction [Recovered/Resolved]
